FAERS Safety Report 24429600 (Version 3)
Quarter: 2024Q4

REPORT INFORMATION
  Report Type: Spontaneous
  Country: HK (occurrence: HK)
  Receive Date: 20241012
  Receipt Date: 20241107
  Transmission Date: 20250115
  Serious: Yes (Other)
  Sender: ALEXION PHARMACEUTICALS
  Company Number: HK-AstraZeneca-CH-00708922A

PATIENT
  Weight: 57.8 kg

DRUGS (16)
  1. XIGDUO XR [Suspect]
     Active Substance: DAPAGLIFLOZIN PROPANEDIOL\METFORMIN HYDROCHLORIDE
     Indication: Diabetes mellitus
     Dosage: 10 MILLIGRAM
  2. XIGDUO XR [Suspect]
     Active Substance: DAPAGLIFLOZIN PROPANEDIOL\METFORMIN HYDROCHLORIDE
     Dosage: 10 MILLIGRAM
  3. XIGDUO XR [Suspect]
     Active Substance: DAPAGLIFLOZIN PROPANEDIOL\METFORMIN HYDROCHLORIDE
     Dosage: 10 MILLIGRAM
  4. XIGDUO XR [Suspect]
     Active Substance: DAPAGLIFLOZIN PROPANEDIOL\METFORMIN HYDROCHLORIDE
     Dosage: 10 MILLIGRAM
  5. ASPIRIN [Concomitant]
     Active Substance: ASPIRIN
     Dosage: 1 DOSAGE FORM, QD
  6. ASPIRIN [Concomitant]
     Active Substance: ASPIRIN
     Dosage: 1 DOSAGE FORM, QD
  7. ROSUVASTATIN [Concomitant]
     Active Substance: ROSUVASTATIN
     Indication: Blood cholesterol decreased
     Dosage: 1 DOSAGE FORM, QD
  8. ROSUVASTATIN [Concomitant]
     Active Substance: ROSUVASTATIN
     Dosage: 1 DOSAGE FORM, QD
  9. GLUFORMIN [Concomitant]
  10. GLUFORMIN [Concomitant]
     Route: 065
  11. BF-FAMOTIDINE [Concomitant]
  12. BF-FAMOTIDINE [Concomitant]
     Route: 065
  13. ATENOLOL [Concomitant]
     Active Substance: ATENOLOL
     Dosage: 1 DOSAGE FORM, QD
  14. ATENOLOL [Concomitant]
     Active Substance: ATENOLOL
     Dosage: 1 DOSAGE FORM, QD
  15. VALSARTAN [Concomitant]
     Active Substance: VALSARTAN
  16. VALSARTAN [Concomitant]
     Active Substance: VALSARTAN
     Route: 065

REACTIONS (3)
  - Monoplegia [Not Recovered/Not Resolved]
  - Urethritis noninfective [Unknown]
  - Pruritus [Not Recovered/Not Resolved]
